FAERS Safety Report 8518127-1 (Version None)
Quarter: 2012Q3

REPORT INFORMATION
  Report Type: 
  Country: None (occurrence: None)
  Receive Date: 20120718
  Receipt Date: 20120709
  Transmission Date: 20120928
  Serious: Yes (Other)
  Sender: FDA-Public Use
  Company Number: US-ASTRAZENECA-2011SE64550

PATIENT
  Age: 59 Year
  Sex: Female

DRUGS (2)
  1. SYMBICORT [Suspect]
     Route: 055
  2. NEBULIZER [Suspect]
     Route: 065

REACTIONS (12)
  - PNEUMONIA [None]
  - PRESYNCOPE [None]
  - MUSCULOSKELETAL STIFFNESS [None]
  - HYPERTENSION [None]
  - DRUG ABUSE [None]
  - MALAISE [None]
  - NON-CARDIAC CHEST PAIN [None]
  - PAIN [None]
  - BRONCHOSPASM [None]
  - DYSPNOEA [None]
  - DRUG DOSE OMISSION [None]
  - THERAPEUTIC RESPONSE DECREASED [None]
